FAERS Safety Report 18084911 (Version 2)
Quarter: 2020Q4

REPORT INFORMATION
  Report Type: Spontaneous
  Country: FR (occurrence: FR)
  Receive Date: 20200729
  Receipt Date: 20201103
  Transmission Date: 20210113
  Serious: Yes (Hospitalization, Other)
  Sender: FDA-Public Use
  Company Number: NVSC2020FR203141

PATIENT
  Age: 63 Year
  Sex: Female
  Weight: 71 kg

DRUGS (16)
  1. ZYVOXID [Suspect]
     Active Substance: LINEZOLID
     Indication: PRODUCT USED FOR UNKNOWN INDICATION
     Dosage: UNK
     Route: 065
  2. ITACITINIB [Suspect]
     Active Substance: ITACITINIB
     Dosage: 100 MG, QD
     Route: 065
     Dates: start: 20181103
  3. CYCLOSPORINE. [Suspect]
     Active Substance: CYCLOSPORINE
     Dosage: 100 MG, QD
     Route: 065
     Dates: start: 20181110, end: 20181113
  4. CYCLOSPORINE. [Suspect]
     Active Substance: CYCLOSPORINE
     Dosage: 60 MG, QD
     Route: 065
     Dates: start: 20181115, end: 20181115
  5. MYCOPHENOLATE MOFETIL. [Suspect]
     Active Substance: MYCOPHENOLATE MOFETIL
     Indication: PROPHYLAXIS AGAINST GRAFT VERSUS HOST DISEASE
     Dosage: 2000 MG, QD
     Route: 065
     Dates: start: 20181107
  6. NOXAFIL [Suspect]
     Active Substance: POSACONAZOLE
     Indication: PRODUCT USED FOR UNKNOWN INDICATION
     Dosage: UNK
     Route: 065
     Dates: start: 20181107, end: 20181120
  7. PANTOPRAZOLE [Concomitant]
     Active Substance: PANTOPRAZOLE
     Indication: PRODUCT USED FOR UNKNOWN INDICATION
     Dosage: 40 MILLIGRAM
     Route: 065
  8. CYCLOSPORINE. [Suspect]
     Active Substance: CYCLOSPORINE
     Dosage: 40 MG, QD
     Route: 065
     Dates: start: 20181117, end: 20181122
  9. ITACITINIB [Suspect]
     Active Substance: ITACITINIB
     Dosage: 100 MG, QD
     Route: 048
     Dates: start: 20181123, end: 20190207
  10. ANTITHYMOCYTE IMMUNOGLOBULIN [Suspect]
     Active Substance: THYMOCYTE IMMUNE GLOBULIN NOS
     Indication: PROPHYLAXIS AGAINST GRAFT VERSUS HOST DISEASE
     Dosage: 660 MG, QD
     Route: 065
     Dates: start: 20181103
  11. NOXAFIL [Suspect]
     Active Substance: POSACONAZOLE
     Dosage: UNK
     Route: 065
     Dates: start: 20181120
  12. AXEPIM [Suspect]
     Active Substance: CEFEPIME HYDROCHLORIDE
     Indication: PRODUCT USED FOR UNKNOWN INDICATION
     Dosage: UNK
     Route: 065
  13. ZOLPIDEM [Concomitant]
     Active Substance: ZOLPIDEM TARTRATE
     Indication: PRODUCT USED FOR UNKNOWN INDICATION
     Dosage: UNK
     Route: 065
     Dates: start: 20181031, end: 20181126
  14. CYCLOSPORINE. [Suspect]
     Active Substance: CYCLOSPORINE
     Indication: PROPHYLAXIS AGAINST GRAFT VERSUS HOST DISEASE
     Dosage: 220 MG, QD
     Route: 065
     Dates: start: 20181105, end: 20181109
  15. ITACITINIB [Suspect]
     Active Substance: ITACITINIB
     Indication: PROPHYLAXIS AGAINST GRAFT VERSUS HOST DISEASE
     Dosage: 200 MG, QD
     Route: 048
     Dates: start: 20181103, end: 20181109
  16. CYCLOSPORINE. [Suspect]
     Active Substance: CYCLOSPORINE
     Dosage: 50 MG, QD
     Route: 065
     Dates: start: 20181124

REACTIONS (10)
  - Bone marrow failure [Not Recovered/Not Resolved]
  - Jaundice cholestatic [Unknown]
  - Cholestasis [Recovered/Resolved]
  - Skin lesion [Unknown]
  - Erythema [Unknown]
  - Cell death [Recovered/Resolved]
  - Diarrhoea [Unknown]
  - Dysphagia [Unknown]
  - Hepatocellular injury [Unknown]
  - Asthenia [Unknown]

NARRATIVE: CASE EVENT DATE: 20181108
